FAERS Safety Report 8050696-0 (Version None)
Quarter: 2012Q1

REPORT INFORMATION
  Report Type: 
  Country: None (occurrence: None)
  Receive Date: 20120117
  Receipt Date: 20120117
  Transmission Date: 20120608
  Serious: No
  Sender: FDA-Public Use
  Company Number: None

PATIENT
  Age: 70 Year
  Sex: Male
  Weight: 99 kg

DRUGS (1)
  1. RAPAFLO [Suspect]
     Indication: BENIGN PROSTATIC HYPERPLASIA
     Dosage: 4 MG
     Route: 048
     Dates: start: 20120106, end: 20120107

REACTIONS (4)
  - IMPAIRED WORK ABILITY [None]
  - DERMATITIS EXFOLIATIVE [None]
  - OEDEMA [None]
  - DEEP VEIN THROMBOSIS [None]
